FAERS Safety Report 13191318 (Version 2)
Quarter: 2017Q1

REPORT INFORMATION
  Report Type: Spontaneous
  Country: FR (occurrence: FR)
  Receive Date: 20170207
  Receipt Date: 20170215
  Transmission Date: 20170428
  Serious: Yes (Hospitalization)
  Sender: FDA-Public Use
  Company Number: FR-ASTRAZENECA-2017SE12172

PATIENT
  Age: 81 Year
  Sex: Male

DRUGS (6)
  1. CRESTOR [Suspect]
     Active Substance: ROSUVASTATIN CALCIUM
     Indication: ATRIAL FIBRILLATION
     Dosage: DOSING UNKNOWN
     Route: 048
     Dates: end: 20170111
  2. AVODART [Concomitant]
     Active Substance: DUTASTERIDE
  3. RAMIPRIL. [Concomitant]
     Active Substance: RAMIPRIL
  4. PREVISCAN [Suspect]
     Active Substance: FLUINDIONE
     Indication: ATRIAL FIBRILLATION
     Dosage: DOSING UNKNOWN
     Route: 065
  5. FLUDEX [Concomitant]
     Active Substance: INDAPAMIDE
  6. CARDENSIEL [Concomitant]
     Active Substance: BISOPROLOL FUMARATE

REACTIONS (1)
  - Cerebral haematoma [Recovering/Resolving]

NARRATIVE: CASE EVENT DATE: 20170111
